FAERS Safety Report 7225782-5 (Version None)
Quarter: 2011Q1

REPORT INFORMATION
  Report Type: 
  Country: None (occurrence: None)
  Receive Date: 20110113
  Receipt Date: 20110104
  Transmission Date: 20110831
  Serious: Yes (Hospitalization)
  Sender: FDA-Public Use
  Company Number: US-PFIZER INC-2011002638

PATIENT
  Age: 39 Year
  Sex: Female

DRUGS (6)
  1. ALCOHOL [Suspect]
  2. CAFFEINE [Concomitant]
  3. PARACETAMOL [Suspect]
  4. ALPRAZOLAM [Suspect]
  5. BENZODIAZEPINE DERIVATIVES [Concomitant]
  6. CITALOPRAM HYDROBROMIDE [Suspect]

REACTIONS (4)
  - OVERDOSE [None]
  - ACIDOSIS [None]
  - COMA [None]
  - LIVER INJURY [None]
